FAERS Safety Report 5518181-5 (Version None)
Quarter: 2007Q4

REPORT INFORMATION
  Report Type: 
  Country: None (occurrence: None)
  Receive Date: 20071113
  Receipt Date: 20071113
  Transmission Date: 20080405
  Serious: No
  Sender: FDA-Public Use
  Company Number: None

PATIENT
  Age: 90 Year
  Sex: Male

DRUGS (10)
  1. AMIODARONE HCL [Suspect]
     Indication: ATRIAL FIBRILLATION
  2. COUMADIN [Concomitant]
  3. SOTALOL HYDROCHLORIDE [Concomitant]
  4. FOSAMAX [Concomitant]
  5. OXYGEN [Concomitant]
  6. FOLIC ACID [Concomitant]
  7. VITAMIN B-12 [Concomitant]
  8. ASCORBIC ACID [Concomitant]
  9. CALCIUM [Concomitant]
  10. VITAMIN D [Concomitant]

REACTIONS (2)
  - DRUG TOXICITY [None]
  - PULMONARY TOXICITY [None]
